FAERS Safety Report 23356063 (Version 2)
Quarter: 2024Q1

REPORT INFORMATION
  Report Type: Spontaneous
  Country: UA (occurrence: UA)
  Receive Date: 20240102
  Receipt Date: 20240120
  Transmission Date: 20240410
  Serious: Yes (Death, Other)
  Sender: FDA-Public Use
  Company Number: UA-ABBVIE-5566444

PATIENT
  Sex: Male
  Weight: 78 kg

DRUGS (1)
  1. VENETOCLAX [Suspect]
     Active Substance: VENETOCLAX
     Indication: Myelodysplastic syndrome
     Route: 048
     Dates: start: 20230831, end: 20230905

REACTIONS (10)
  - Hepatosplenomegaly [Not Recovered/Not Resolved]
  - Anuria [Not Recovered/Not Resolved]
  - Acute myeloid leukaemia [Fatal]
  - Deficiency anaemia [Not Recovered/Not Resolved]
  - Cardiopulmonary failure [Fatal]
  - Hepatic failure [Not Recovered/Not Resolved]
  - Pulmonary oedema [Not Recovered/Not Resolved]
  - Poisoning [Not Recovered/Not Resolved]
  - Gastritis erosive [Not Recovered/Not Resolved]
  - Renal failure [Not Recovered/Not Resolved]

NARRATIVE: CASE EVENT DATE: 20230101
